FAERS Safety Report 9678739 (Version 2)
Quarter: 2013Q4

REPORT INFORMATION
  Report Type: Spontaneous
  Country: US (occurrence: US)
  Receive Date: 20131108
  Receipt Date: 20131108
  Transmission Date: 20140711
  Serious: Yes (Hospitalization)
  Sender: FDA-Public Use
  Company Number: US-B.I. PHARMACEUTICALS,INC./RIDGEFIELD-2013-BI-13745BP

PATIENT
  Age: 66 Year
  Sex: Female
  Weight: 54.43 kg

DRUGS (10)
  1. PRADAXA [Suspect]
     Indication: ANTICOAGULANT THERAPY
     Dosage: 150 MG
     Route: 048
     Dates: end: 20110606
  2. PRADAXA [Suspect]
     Indication: ATRIAL FIBRILLATION
  3. PLAVIX [Suspect]
     Dates: end: 201106
  4. ASPIRIN [Suspect]
     Route: 048
     Dates: end: 20110606
  5. DICLOFENAC [Suspect]
     Dosage: 75 MG
     Route: 048
     Dates: end: 20110606
  6. SYNTHROID [Concomitant]
     Dosage: 75 MCG
     Route: 048
  7. TRAVATAN [Concomitant]
  8. CENESTIN [Concomitant]
     Route: 048
  9. CRESTOR [Concomitant]
     Indication: HYPERLIPIDAEMIA
     Route: 048
  10. SOTALOL [Concomitant]
     Route: 048

REACTIONS (3)
  - Upper gastrointestinal haemorrhage [Unknown]
  - Haemorrhagic anaemia [Unknown]
  - Eye haemorrhage [Unknown]
